FAERS Safety Report 11248209 (Version 2)
Quarter: 2015Q4

REPORT INFORMATION
  Report Type: Spontaneous
  Country: TR (occurrence: TR)
  Receive Date: 20150708
  Receipt Date: 20151006
  Transmission Date: 20160304
  Serious: Yes (Life-Threatening, Hospitalization, Other)
  Sender: FDA-Public Use
  Company Number: TR-ALEXION-A201502492

PATIENT

DRUGS (1)
  1. SOLIRIS [Suspect]
     Active Substance: ECULIZUMAB
     Indication: PAROXYSMAL NOCTURNAL HAEMOGLOBINURIA
     Dosage: 600 MG, QW
     Route: 042
     Dates: start: 201407

REACTIONS (3)
  - Klebsiella infection [Recovering/Resolving]
  - Pseudomonas infection [Recovering/Resolving]
  - Necrotising fasciitis [Recovering/Resolving]
